FAERS Safety Report 8621884-7 (Version None)
Quarter: 2012Q3

REPORT INFORMATION
  Report Type: 
  Country: None (occurrence: None)
  Receive Date: 20120822
  Receipt Date: 20120822
  Transmission Date: 20120928
  Serious: No
  Sender: FDA-Public Use
  Company Number: None

PATIENT
  Age: 90 Year
  Sex: Male

DRUGS (1)
  1. TRELSTAR [Suspect]
     Dosage: 11 25 MG  EVERY 3 MONTHS INTRAMUSCULAR
     Route: 030
     Dates: start: 20120202, end: 20120818

REACTIONS (2)
  - DEPRESSION [None]
  - FATIGUE [None]
